FAERS Safety Report 10261676 (Version 1)
Quarter: 2014Q2

REPORT INFORMATION
  Report Type: Spontaneous
  Country: PT (occurrence: PT)
  Receive Date: 20140626
  Receipt Date: 20140626
  Transmission Date: 20141212
  Serious: Yes (Other)
  Sender: FDA-Public Use
  Company Number: PHHY2014PT075195

PATIENT
  Age: 17 Year
  Sex: Male
  Weight: 64 kg

DRUGS (7)
  1. ISONIAZID [Suspect]
     Indication: PULMONARY TUBERCULOSIS
     Dosage: 300 MG, PER DAY
  2. RIFAMPICIN [Suspect]
     Indication: PULMONARY TUBERCULOSIS
     Dosage: 600 MG, PER DAY
  3. ETHAMBUTOL [Suspect]
     Indication: PULMONARY TUBERCULOSIS
     Dosage: 1.2 G PER DAY
  4. AMIKACIN [Suspect]
     Indication: PULMONARY TUBERCULOSIS
     Dosage: 1 G, PER DAY
  5. PYRAZINAMIDE [Concomitant]
     Indication: PULMONARY TUBERCULOSIS
     Dosage: 2 G, PER DAY
  6. MOXIFLOXACIN [Concomitant]
     Indication: PULMONARY TUBERCULOSIS
     Dosage: 400 MG, PER DAY
  7. PARA-AMINOSALICYLIC ACID [Concomitant]
     Dosage: 8 G PER DAY

REACTIONS (2)
  - Neurosensory hypoacusis [Recovered/Resolved]
  - Drug resistance [Unknown]
